FAERS Safety Report 7572342-2 (Version None)
Quarter: 2011Q2

REPORT INFORMATION
  Report Type: 
  Country: None (occurrence: None)
  Receive Date: 20110624
  Receipt Date: 20110617
  Transmission Date: 20111010
  Serious: Yes (Other)
  Sender: FDA-Public Use
  Company Number: PHHY2011DE53834

PATIENT
  Age: 32 Year
  Sex: Female

DRUGS (1)
  1. GILENYA [Suspect]
     Indication: MULTIPLE SCLEROSIS
     Dosage: 0.5 MG, QD
     Route: 048
     Dates: start: 20110606, end: 20110614

REACTIONS (5)
  - EPILEPSY [None]
  - CENTRAL NERVOUS SYSTEM LESION [None]
  - MENTAL DISORDER [None]
  - GAIT SPASTIC [None]
  - LYMPHOPENIA [None]
